FAERS Safety Report 12552147 (Version 1)
Quarter: 2016Q3

REPORT INFORMATION
  Report Type: Spontaneous
  Country: US (occurrence: None)
  Receive Date: 20160712
  Receipt Date: 20160712
  Transmission Date: 20161109
  Serious: Yes (Other)
  Sender: FDA-Public Use
  Company Number: None

PATIENT

DRUGS (2)
  1. MAGNESIUM SULFATE. [Suspect]
     Active Substance: MAGNESIUM SULFATE
  2. ABACUS TPN SOFTWARE [Suspect]
     Active Substance: DEVICE
     Dates: start: 20160608, end: 20160610

REACTIONS (3)
  - Device computer issue [None]
  - Product preparation error [None]
  - Product dosage form issue [None]

NARRATIVE: CASE EVENT DATE: 20160608
